FAERS Safety Report 4889267-3 (Version None)
Quarter: 2006Q1

REPORT INFORMATION
  Report Type: 
  Country: None (occurrence: None)
  Receive Date: 20060124
  Receipt Date: 20060118
  Transmission Date: 20060701
  Serious: Yes (Hospitalization)
  Sender: FDA-Public Use
  Company Number: US-JNJFOC-20051001930

PATIENT
  Sex: Female

DRUGS (10)
  1. DOXIL [Suspect]
     Route: 042
  2. LEXAPRO [Concomitant]
     Indication: DEPRESSION
     Route: 048
  3. ATIVAN [Concomitant]
     Indication: INSOMNIA
     Route: 048
  4. SEROQUEL [Concomitant]
     Indication: INSOMNIA
     Route: 048
  5. SEROQUEL [Concomitant]
     Indication: DEPRESSION
     Route: 048
  6. WELLBUTRIN [Concomitant]
     Indication: DEPRESSION
     Route: 048
  7. SYNTHROID [Concomitant]
     Indication: HYPOTHYROIDISM
     Route: 048
  8. FENTANYL [Concomitant]
     Indication: PAIN
     Route: 062
  9. PREVACID [Concomitant]
     Route: 048
  10. CYMBALTA [Concomitant]
     Indication: DEPRESSION
     Route: 048

REACTIONS (2)
  - ALVEOLITIS ALLERGIC [None]
  - RASH [None]
